FAERS Safety Report 9431816 (Version 2)
Quarter: 2013Q3

REPORT INFORMATION
  Report Type: Spontaneous
  Country: IR (occurrence: IR)
  Receive Date: 20130731
  Receipt Date: 20130911
  Transmission Date: 20140515
  Serious: Yes (Hospitalization)
  Sender: FDA-Public Use
  Company Number: IR-009507513-1307IRN012220

PATIENT
  Age: 76 Year
  Sex: Male
  Weight: 65 kg

DRUGS (5)
  1. VICTRELIS [Suspect]
     Indication: CHRONIC HEPATITIS C
     Dosage: 2400MG/DAY
     Route: 048
     Dates: start: 20130307, end: 20130523
  2. PEG-INTRON [Suspect]
     Indication: CHRONIC HEPATITIS C
     Dosage: UNK, QW
     Route: 058
     Dates: start: 2010
  3. PEG-INTRON [Suspect]
     Dosage: UNK
     Dates: end: 20130305
  4. PEG-INTRON [Suspect]
     Dosage: 100 MICROGRAM, QW
     Route: 058
     Dates: start: 20130206
  5. REBETOL [Suspect]
     Indication: CHRONIC HEPATITIS C
     Dosage: 1000MG, PER DAY
     Dates: start: 20130206, end: 20130523

REACTIONS (3)
  - Anaemia [Recovered/Resolved]
  - Transfusion [Unknown]
  - Hepatitis C [Unknown]
